FAERS Safety Report 9233871 (Version 1)
Quarter: 2013Q2

REPORT INFORMATION
  Report Type: Spontaneous
  Country: US (occurrence: US)
  Receive Date: 20130416
  Receipt Date: 20130416
  Transmission Date: 20140414
  Serious: Yes (Hospitalization)
  Sender: FDA-Public Use
  Company Number: US-UCBSA-082812

PATIENT
  Age: 73 Year
  Sex: Male
  Weight: 110 kg

DRUGS (27)
  1. ALLOPURINOL [Concomitant]
     Indication: GOUT
     Dosage: 300 MG
     Route: 048
     Dates: start: 20120307
  2. AMIODARONE [Concomitant]
     Indication: VENTRICULAR TACHYCARDIA
     Dosage: 200 MG
     Route: 048
     Dates: start: 20120227
  3. COREG [Concomitant]
     Indication: HYPERTENSION
     Dosage: 50 MG (25 MG)
     Route: 048
  4. DOMPERIDONE [Concomitant]
     Indication: PANCREATITIS CHRONIC
     Dosage: 80 MG (10 MG)
     Route: 048
  5. CYMBALTA [Concomitant]
     Indication: DEPRESSION
     Dosage: 30 MG, FORM: KA
     Route: 048
     Dates: start: 20110126
  6. FENTANYL [Concomitant]
     Indication: RHEUMATOID ARTHRITIS
     Dosage: 25 MG
     Route: 062
     Dates: start: 20121001
  7. FENTANYL [Concomitant]
     Indication: ARTHRALGIA
     Dosage: 25 MG
     Route: 062
     Dates: start: 20121001
  8. GEMFIBROZIL [Concomitant]
     Indication: HYPERLIPIDAEMIA
     Dosage: 1200 GM (600 MG)
     Route: 048
  9. HYDROXYCHLOROQUINE [Concomitant]
     Indication: ARTHRITIS
     Dosage: 400 MG (200 MG)
     Route: 048
     Dates: start: 20111111
  10. ISOSORBIDE MONONITRATE [Concomitant]
     Indication: CHEST PAIN
     Dosage: 120 MG ( 60 MG)
     Route: 048
  11. LANTUS [Concomitant]
     Indication: TYPE 2 DIABETES MELLITUS
     Dosage: 120  U( 60 U INS)
  12. VITAMIN D [Concomitant]
     Indication: VITAMIN D DEFICIENCY
     Dosage: 25000 U(50000 U QOD), FORM :KA
     Route: 048
     Dates: start: 20120905
  13. COUMADIN [Concomitant]
     Dosage: M , T,W,S
     Route: 048
  14. COUMADIN [Concomitant]
     Dosage: 5 MG
     Route: 048
  15. ZENPEP [Concomitant]
     Indication: PANCREATITIS CHRONIC
     Dosage: L PKT, 10 PKT, FORM : PL
     Route: 048
     Dates: start: 20101124
  16. SPIRONOLACTONE [Concomitant]
     Indication: OEDEMA
     Dosage: 50 MG
     Route: 048
     Dates: start: 20120628
  17. ZAROXOLYN [Suspect]
     Dosage: DAILY DOSE: 1.6667 MG (5 MG,5MG EVERY 3 DAYS)
     Route: 048
     Dates: start: 20111108
  18. UNSPECIFIED [Suspect]
     Indication: TYPE 2 DIABETES MELLITUS
     Route: 048
     Dates: start: 20130108, end: 2013
  19. ARAVA [Concomitant]
     Dosage: 20 MG
     Route: 048
     Dates: start: 20120905
  20. LEVOTHYROXINE [Concomitant]
     Dosage: 20 MG
     Route: 048
  21. LOSARTAN [Concomitant]
     Dosage: 25 MG
     Route: 048
     Dates: start: 20121009
  22. METHOTREXATE [Concomitant]
     Dosage: 250, FORM :LO
     Dates: start: 20111108
  23. NITROGLYCERIN [Concomitant]
     Dosage: 0.4
     Route: 060
  24. NOVOLOG [Concomitant]
     Dosage: 140 U (35 U,INS, INJ)
  25. OMEPRAZOLE [Concomitant]
     Dosage: 40 MG (20 MG)
     Route: 048
     Dates: start: 20100708
  26. POTASSIUM [Concomitant]
     Dosage: 10 MEQ, FORM : KA
     Route: 048
     Dates: start: 20111108
  27. TRAMADOL [Concomitant]
     Dosage: 100 MG (50 MG)
     Route: 048
     Dates: start: 20120327

REACTIONS (4)
  - Angina unstable [Unknown]
  - Abdominal pain [Not Recovered/Not Resolved]
  - Pancreatitis chronic [Not Recovered/Not Resolved]
  - Chest pain [Unknown]
